FAERS Safety Report 25754735 (Version 1)
Quarter: 2025Q3

REPORT INFORMATION
  Report Type: Other
  Country: MY (occurrence: MY)
  Receive Date: 20250903
  Receipt Date: 20250903
  Transmission Date: 20251021
  Serious: Yes (Hospitalization)
  Sender: ESJAY PHARMA
  Company Number: MY-ESJAY PHARMA-000970

PATIENT
  Age: 76 Year
  Sex: Male

DRUGS (6)
  1. RISPERIDONE [Suspect]
     Active Substance: RISPERIDONE
     Indication: Schizophrenia
     Route: 048
  2. ARIPIPRAZOLE [Concomitant]
     Active Substance: ARIPIPRAZOLE
     Indication: Schizophrenia
     Route: 048
  3. GLICLAZIDE [Concomitant]
     Active Substance: GLICLAZIDE
     Indication: Type 2 diabetes mellitus
  4. METOPROLOL [Concomitant]
     Active Substance: METOPROLOL
     Indication: Hypertension
  5. AMLODIPINE [Concomitant]
     Active Substance: AMLODIPINE BESYLATE
     Indication: Hypertension
  6. LOVASTATIN [Concomitant]
     Active Substance: LOVASTATIN
     Indication: Hyperlipidaemia

REACTIONS (1)
  - Treatment noncompliance [Unknown]
